FAERS Safety Report 8222812-9 (Version None)
Quarter: 2012Q1

REPORT INFORMATION
  Report Type: 
  Country: None (occurrence: None)
  Receive Date: 20120320
  Receipt Date: 20120314
  Transmission Date: 20120608
  Serious: Yes (Death, Other)
  Sender: FDA-Public Use
  Company Number: US-US-EMD SERONO, INC.-7119471

PATIENT
  Age: 28 Year
  Sex: Female

DRUGS (4)
  1. FOLLISTIM [Concomitant]
     Indication: ASSISTED FERTILISATION
  2. CHORIOGONADOTROPIN ALFA [Suspect]
     Indication: ASSISTED FERTILISATION
  3. CABERGOLINE [Concomitant]
     Indication: PITUITARY TUMOUR BENIGN
  4. CABERGOLINE [Concomitant]
     Indication: HYPERPROLACTINAEMIA

REACTIONS (7)
  - DEATH NEONATAL [None]
  - HYPERPROLACTINAEMIA [None]
  - CAESAREAN SECTION [None]
  - PREMATURE SEPARATION OF PLACENTA [None]
  - TWIN PREGNANCY [None]
  - LIVE BIRTH [None]
  - MATERNAL EXPOSURE TIMING UNSPECIFIED [None]
